FAERS Safety Report 25049390 (Version 2)
Quarter: 2025Q2

REPORT INFORMATION
  Report Type: Spontaneous
  Country: CA (occurrence: CA)
  Receive Date: 20250307
  Receipt Date: 20250403
  Transmission Date: 20250717
  Serious: No
  Sender: CELLTRION
  Company Number: CA-PFIZER INC-202500017210

PATIENT

DRUGS (5)
  1. INFLECTRA [Suspect]
     Active Substance: INFLIXIMAB-DYYB
     Indication: Colitis ulcerative
     Route: 042
     Dates: start: 20250122
  2. INFLECTRA [Suspect]
     Active Substance: INFLIXIMAB-DYYB
     Route: 042
     Dates: start: 20250225
  3. METHOTREXATE [Concomitant]
     Active Substance: METHOTREXATE
     Indication: Arthritis
     Dosage: 15 MG, WEEKLY
     Route: 048
     Dates: start: 202410
  4. MESALAMINE [Concomitant]
     Active Substance: MESALAMINE
  5. PREDNISONE [Concomitant]
     Active Substance: PREDNISONE

REACTIONS (5)
  - Condition aggravated [Not Recovered/Not Resolved]
  - Nasopharyngitis [Not Recovered/Not Resolved]
  - Gingival pain [Not Recovered/Not Resolved]
  - Skin laceration [Recovered/Resolved]
  - Dacryostenosis acquired [Unknown]

NARRATIVE: CASE EVENT DATE: 20250101
